FAERS Safety Report 25848368 (Version 1)
Quarter: 2025Q3

REPORT INFORMATION
  Report Type: Spontaneous
  Country: US (occurrence: US)
  Receive Date: 20250925
  Receipt Date: 20250925
  Transmission Date: 20251021
  Serious: No
  Sender: MYLAN
  Company Number: US-MYLANLABS-2025M1080279

PATIENT
  Age: 5 Year
  Sex: Female
  Weight: 19.8 kg

DRUGS (4)
  1. CELEBREX [Suspect]
     Active Substance: CELECOXIB
     Indication: Juvenile idiopathic arthritis
  2. CELEBREX [Suspect]
     Active Substance: CELECOXIB
     Route: 048
  3. CELEBREX [Suspect]
     Active Substance: CELECOXIB
     Route: 048
  4. CELEBREX [Suspect]
     Active Substance: CELECOXIB

REACTIONS (1)
  - Wrong technique in product usage process [Unknown]
